FAERS Safety Report 4681225-7 (Version None)
Quarter: 2005Q2

REPORT INFORMATION
  Report Type: 
  Country: None (occurrence: None)
  Receive Date: 20050603
  Receipt Date: 20050525
  Transmission Date: 20051028
  Serious: Yes (Death)
  Sender: FDA-Public Use
  Company Number: US-JNJFOC-20050506780

PATIENT
  Sex: Female

DRUGS (3)
  1. RISPERDAL [Suspect]
     Indication: DRUG USE FOR UNKNOWN INDICATION
     Route: 049
  2. COGENTIN [Concomitant]
     Dosage: 1-2 MG
  3. PROZAC [Concomitant]

REACTIONS (1)
  - BODY TEMPERATURE INCREASED [None]
